FAERS Safety Report 4294506-6 (Version None)
Quarter: 2004Q1

REPORT INFORMATION
  Report Type: 
  Country: None (occurrence: None)
  Receive Date: 20040211
  Receipt Date: 20040203
  Transmission Date: 20041129
  Serious: Yes (Other)
  Sender: FDA-Public Use
  Company Number: NL-JNJFOC-20040201064

PATIENT

DRUGS (2)
  1. DURAGESIC [Suspect]
     Dosage: SEE IMAGE
     Route: 062
  2. FENTANYL [Suspect]
     Dosage: SEE IMAGE

REACTIONS (2)
  - APATHY [None]
  - DRUG INTERACTION [None]
